FAERS Safety Report 5048162-X (Version None)
Quarter: 2006Q3

REPORT INFORMATION
  Report Type: 
  Country: None (occurrence: None)
  Receive Date: 20060711
  Receipt Date: 20060518
  Transmission Date: 20061208
  Serious: Yes (Other)
  Sender: FDA-Public Use
  Company Number: JP-ROCHE-448943

PATIENT
  Age: 67 Year
  Sex: Male
  Weight: 60 kg

DRUGS (4)
  1. PEGASYS [Suspect]
     Indication: HEPATITIS C
     Route: 058
     Dates: start: 20050615
  2. PEGASYS [Suspect]
     Route: 058
     Dates: start: 20060227
  3. DIOVAN [Suspect]
     Indication: HYPERTENSION
     Route: 048
     Dates: start: 20050127, end: 20060530
  4. AMLODIN [Concomitant]
     Route: 048

REACTIONS (3)
  - ECZEMA [None]
  - ERYTHEMA MULTIFORME [None]
  - RASH [None]
